FAERS Safety Report 23829828 (Version 1)
Quarter: 2024Q2

REPORT INFORMATION
  Report Type: Spontaneous
  Country: US (occurrence: US)
  Receive Date: 20240508
  Receipt Date: 20240508
  Transmission Date: 20240716
  Serious: No
  Sender: FDA-Public Use
  Company Number: US-SPECGX-T202400676

PATIENT
  Sex: Female

DRUGS (1)
  1. NALTREXONE [Suspect]
     Active Substance: NALTREXONE
     Indication: Pruritus
     Dosage: 25 MILLIGRAM (SPLIT THE TABLET IN HALF)
     Route: 048
     Dates: start: 20240211

REACTIONS (5)
  - Feeding disorder [Not Recovered/Not Resolved]
  - Nausea [Not Recovered/Not Resolved]
  - Weight decreased [Not Recovered/Not Resolved]
  - Wrong technique in product usage process [Unknown]
  - Off label use [Unknown]

NARRATIVE: CASE EVENT DATE: 20240211
